FAERS Safety Report 10143816 (Version 1)
Quarter: 2014Q2

REPORT INFORMATION
  Report Type: Spontaneous
  Country: FR (occurrence: FR)
  Receive Date: 20140430
  Receipt Date: 20140430
  Transmission Date: 20141212
  Serious: Yes (Hospitalization)
  Sender: FDA-Public Use
  Company Number: FR-GLAXOSMITHKLINE-B0988529A

PATIENT
  Age: 72 Year
  Sex: Male
  Weight: 83 kg

DRUGS (8)
  1. ZOPHREN [Suspect]
     Indication: PRODUCT USED FOR UNKNOWN INDICATION
     Dosage: 8MG PER DAY
     Route: 042
     Dates: start: 20140220
  2. AFLIBERCEPT [Suspect]
     Indication: RECTAL NEOPLASM
     Dosage: 332MG PER DAY
     Route: 042
     Dates: start: 20140220
  3. ATROPINE [Suspect]
     Indication: CHOLINERGIC SYNDROME
     Dosage: .25MG PER DAY
     Route: 058
     Dates: start: 20140220
  4. CAMPTO [Suspect]
     Indication: RECTAL NEOPLASM
     Dosage: 265MG PER DAY
     Route: 042
     Dates: start: 20140220
  5. FOLIC ACID [Suspect]
     Indication: PRODUCT USED FOR UNKNOWN INDICATION
     Dosage: 780MG PER DAY
     Route: 042
     Dates: start: 20140220
  6. FLUOROURACIL [Suspect]
     Indication: RECTAL NEOPLASM
     Dosage: 6260MG PER DAY
     Route: 042
     Dates: start: 20140220
  7. STAGID [Concomitant]
     Indication: DIABETES MELLITUS
     Route: 048
  8. LIPANTHYL [Concomitant]
     Indication: DYSLIPIDAEMIA
     Route: 048

REACTIONS (4)
  - Hypertension [Recovering/Resolving]
  - Dyspnoea [Recovering/Resolving]
  - Proteinuria [Recovering/Resolving]
  - Dysphonia [Recovering/Resolving]
